FAERS Safety Report 24130295 (Version 1)
Quarter: 2024Q3

REPORT INFORMATION
  Report Type: Spontaneous
  Country: NL (occurrence: NL)
  Receive Date: 20240724
  Receipt Date: 20240724
  Transmission Date: 20241016
  Serious: Yes (Congenital Anomaly)
  Sender: EMD SERONO INC
  Company Number: None

PATIENT
  Sex: Male
  Weight: 3 kg

DRUGS (2)
  1. GONAL-F [Suspect]
     Active Substance: FOLLITROPIN
     Indication: In vitro fertilisation
     Dosage: 1 DAILY DOSE, GONAL F INJECTION POWDER FLASK 75IE PLUS SOLVABLE 1ML
     Route: 064
     Dates: start: 20230511
  2. GANIRELIX [Suspect]
     Active Substance: GANIRELIX
     Indication: In vitro fertilisation
     Dosage: 1 DAILY DOSE, GANIRELIX INJECTION FLUID 0.5 MG/ML
     Route: 064
     Dates: start: 20230515

REACTIONS (2)
  - VACTERL syndrome [Not Recovered/Not Resolved]
  - Maternal exposure during pregnancy [Unknown]

NARRATIVE: CASE EVENT DATE: 20231210
